FAERS Safety Report 24922597 (Version 1)
Quarter: 2025Q1

REPORT INFORMATION
  Report Type: Spontaneous
  Country: US (occurrence: None)
  Receive Date: 20250204
  Receipt Date: 20250204
  Transmission Date: 20250408
  Serious: No
  Sender: FDA-CTU
  Company Number: None

PATIENT

DRUGS (2)
  1. PRISTIQ EXTENDED-RELEASE [Suspect]
     Active Substance: DESVENLAFAXINE SUCCINATE
  2. RISPERDAL [Suspect]
     Active Substance: RISPERIDONE

REACTIONS (2)
  - Drug ineffective [None]
  - Weight increased [None]

NARRATIVE: CASE EVENT DATE: 20250203
